FAERS Safety Report 19889246 (Version 1)
Quarter: 2021Q3

REPORT INFORMATION
  Report Type: Spontaneous
  Country: US (occurrence: US)
  Receive Date: 20210927
  Receipt Date: 20210927
  Transmission Date: 20211014
  Serious: No
  Sender: FDA-Public Use
  Company Number: None

PATIENT
  Age: 78 Year
  Sex: Female

DRUGS (1)
  1. HUMIRA [Suspect]
     Active Substance: ADALIMUMAB
     Indication: PSORIASIS
     Route: 058
     Dates: start: 20140201

REACTIONS (8)
  - Liver disorder [None]
  - Urinary tract infection [None]
  - Therapy interrupted [None]
  - Product communication issue [None]
  - Conjunctivitis [None]
  - Faeces pale [None]
  - Injection site pain [None]
  - Immunosuppression [None]

NARRATIVE: CASE EVENT DATE: 20210601
